FAERS Safety Report 18661338 (Version 1)
Quarter: 2020Q4

REPORT INFORMATION
  Report Type: Spontaneous
  Country: US (occurrence: US)
  Receive Date: 20201224
  Receipt Date: 20201224
  Transmission Date: 20210114
  Serious: Yes (Life-Threatening)
  Sender: FDA-Public Use
  Company Number: None

PATIENT
  Age: 29 Year
  Sex: Female
  Weight: 67.5 kg

DRUGS (23)
  1. CARDIZEM ER [Concomitant]
     Active Substance: DILTIAZEM HYDROCHLORIDE
  2. SINGULAIR [Concomitant]
     Active Substance: MONTELUKAST SODIUM
  3. SYMBICORT [Concomitant]
     Active Substance: BUDESONIDE\FORMOTEROL FUMARATE DIHYDRATE
  4. MELATONIN [Concomitant]
     Active Substance: MELATONIN
  5. FERROUS SULFATE. [Concomitant]
     Active Substance: FERROUS SULFATE
  6. RELPAX [Concomitant]
     Active Substance: ELETRIPTAN HYDROBROMIDE
  7. ATORVASTATIN [Concomitant]
     Active Substance: ATORVASTATIN
  8. PANTOPRAZOLE [Concomitant]
     Active Substance: PANTOPRAZOLE
  9. FLUTICASONE. [Concomitant]
     Active Substance: FLUTICASONE
  10. ASPIRIN 81 MG [Concomitant]
     Active Substance: ASPIRIN
  11. MAGNESIUM [Concomitant]
     Active Substance: MAGNESIUM
  12. VITAMIN B12 [Concomitant]
     Active Substance: CYANOCOBALAMIN
  13. ASTELIN [Concomitant]
     Active Substance: AZELASTINE HYDROCHLORIDE
  14. ALBUTEROL. [Concomitant]
     Active Substance: ALBUTEROL
  15. VITAMIN B6 [Concomitant]
     Active Substance: PYRIDOXINE HYDROCHLORIDE
  16. METFORMIN ER [Concomitant]
     Active Substance: METFORMIN HYDROCHLORIDE
  17. FERRLECIT [Suspect]
     Active Substance: SODIUM FERRIC GLUCONATE COMPLEX
     Indication: ANAEMIA
     Route: 042
     Dates: start: 20201222, end: 20201222
  18. INSULIN PUMP [Concomitant]
     Active Substance: DEVICE\INSULIN NOS
  19. ZYRTEC [Concomitant]
     Active Substance: CETIRIZINE HYDROCHLORIDE
  20. KETOTIFEN [Concomitant]
     Active Substance: KETOTIFEN
  21. VITAMIN D3 [Concomitant]
     Active Substance: CHOLECALCIFEROL
  22. NOVOLOG [Concomitant]
     Active Substance: INSULIN ASPART
  23. TOPAMAX [Concomitant]
     Active Substance: TOPIRAMATE

REACTIONS (16)
  - Flushing [None]
  - Dyspnoea [None]
  - Hyperhidrosis [None]
  - Asthenia [None]
  - Speech disorder [None]
  - Paraesthesia oral [None]
  - Dizziness [None]
  - Hypotension [None]
  - Somnolence [None]
  - Paraesthesia [None]
  - Chest pain [None]
  - Nausea [None]
  - Feeling abnormal [None]
  - Throat tightness [None]
  - Abdominal pain [None]
  - Tachycardia [None]

NARRATIVE: CASE EVENT DATE: 20201222
